FAERS Safety Report 12204015 (Version 1)
Quarter: 2016Q1

REPORT INFORMATION
  Report Type: Spontaneous
  Country: US (occurrence: None)
  Receive Date: 20160322
  Receipt Date: 20160322
  Transmission Date: 20160526
  Serious: No
  Sender: FDA-Public Use
  Company Number: None

PATIENT
  Age: 41 Year
  Sex: Female

DRUGS (1)
  1. ENBREL [Suspect]
     Active Substance: ETANERCEPT
     Indication: SPONDYLOARTHROPATHY
     Route: 058
     Dates: start: 20151216, end: 20160114

REACTIONS (4)
  - Urticaria [None]
  - Injection site erythema [None]
  - Injection site swelling [None]
  - Dyspnoea [None]

NARRATIVE: CASE EVENT DATE: 20160114
